FAERS Safety Report 8913829 (Version 3)
Quarter: 2013Q4

REPORT INFORMATION
  Report Type: Spontaneous
  Country: US (occurrence: US)
  Receive Date: 20121119
  Receipt Date: 20131108
  Transmission Date: 20140711
  Serious: Yes (Hospitalization)
  Sender: FDA-Public Use
  Company Number: US-BAYER-2012-118614

PATIENT
  Age: 27 Year
  Sex: Female
  Weight: 77.1 kg

DRUGS (9)
  1. BEYAZ [Suspect]
     Indication: CONTRACEPTION
     Dosage: UNK
     Dates: start: 201105, end: 201108
  2. SERTRALINE [Concomitant]
     Dosage: 50 MG,ONE HS
  3. ZOLPIDEM [Concomitant]
     Indication: INSOMNIA
     Dosage: 10 MG, PRN
  4. SULFAMETHOXAZOLE/TRIMETHOPRIM [Concomitant]
     Dosage: 1 TWICE A DAY FOR 5 DAYS
  5. DILAUDID [Concomitant]
     Dosage: 30
  6. FRAGMIN [Concomitant]
  7. TYLENOL [Concomitant]
  8. ADVIL [Concomitant]
  9. AMBIEN [Concomitant]

REACTIONS (3)
  - Pulmonary embolism [None]
  - Pain [None]
  - Dyspnoea [None]
